FAERS Safety Report 21760561 (Version 1)
Quarter: 2022Q4

REPORT INFORMATION
  Report Type: Spontaneous
  Country: US (occurrence: None)
  Receive Date: 20221220
  Receipt Date: 20221220
  Transmission Date: 20230113
  Serious: Yes (Hospitalization)
  Sender: FDA-Public Use
  Company Number: None

PATIENT
  Sex: Female

DRUGS (1)
  1. TEMOZOLOMIDE [Suspect]
     Active Substance: TEMOZOLOMIDE
     Indication: Breast mass
     Dosage: FREQUENCY : DAILY;?
     Route: 048
     Dates: start: 202211

REACTIONS (2)
  - Musculoskeletal stiffness [None]
  - Joint range of motion decreased [None]
